FAERS Safety Report 7488210-0 (Version None)
Quarter: 2011Q2

REPORT INFORMATION
  Report Type: 
  Country: None (occurrence: None)
  Receive Date: 20110518
  Receipt Date: 20110511
  Transmission Date: 20111010
  Serious: Yes (Hospitalization)
  Sender: FDA-Public Use
  Company Number: IL-ROCHE-776679

PATIENT
  Sex: Female

DRUGS (2)
  1. BEVACIZUMAB [Suspect]
     Indication: BREAST CANCER
     Dosage: LAST DOSE PRIOR TO SAE: 04 NOVEMBER 2010; DISCONTINUED.
     Route: 065
     Dates: start: 20100718, end: 20101129
  2. CAPECITABINE [Suspect]
     Indication: BREAST CANCER
     Dosage: DOSE LEVEL: 100%; LAST DOSE PRIOR TO SAE: 04 NOVEMBER 2010; DISCONTINUED.
     Route: 065
     Dates: start: 20100718, end: 20101129

REACTIONS (2)
  - ISCHAEMIC STROKE [None]
  - PULMONARY OEDEMA [None]
